FAERS Safety Report 9111708 (Version 1)
Quarter: 2013Q1

REPORT INFORMATION
  Report Type: Spontaneous
  Country: US (occurrence: US)
  Receive Date: 20130219
  Receipt Date: 20130219
  Transmission Date: 20140127
  Serious: No
  Sender: FDA-Public Use
  Company Number: US-BRISTOL-MYERS SQUIBB COMPANY-16350316

PATIENT
  Age: 28 Year
  Sex: Female
  Weight: 109 kg

DRUGS (2)
  1. ORENCIA [Suspect]
     Indication: RHEUMATOID ARTHRITIS
     Dosage: INITIALLY GIVEN IV ORENCIA IN JAN11,THEN SWITCHED TO SUBCUTANEOUS TWO MONTHS AGO
     Route: 058
     Dates: start: 2011
  2. METHOTREXATE [Concomitant]

REACTIONS (1)
  - Incorrect storage of drug [Unknown]
